FAERS Safety Report 7197373-6 (Version None)
Quarter: 2010Q4

REPORT INFORMATION
  Report Type: 
  Country: None (occurrence: None)
  Receive Date: 20101213
  Receipt Date: 20101207
  Transmission Date: 20110411
  Serious: Yes (Other)
  Sender: FDA-Public Use
  Company Number: TRP_07438_2010

PATIENT
  Age: 53 Year
  Sex: Male

DRUGS (2)
  1. RIBAVIRIN [Suspect]
     Indication: HEPATITIS C
     Dosage: 1000 MG, DAILY
     Dates: start: 20060701, end: 20070101
  2. PEGASYS [Suspect]
     Indication: HEPATITIS C
     Dosage: 180 UG 1X/WEEK)
     Dates: start: 20060701, end: 20070101

REACTIONS (9)
  - AUTOIMMUNE DISORDER [None]
  - BRONCHIAL DISORDER [None]
  - BRONCHIAL SECRETION RETENTION [None]
  - BRONCHIAL WALL THICKENING [None]
  - DRUG TOXICITY [None]
  - DYSPNOEA EXERTIONAL [None]
  - PRODUCTIVE COUGH [None]
  - PULMONARY TOXICITY [None]
  - TYPE IV HYPERSENSITIVITY REACTION [None]
